FAERS Safety Report 25656210 (Version 4)
Quarter: 2025Q4

REPORT INFORMATION
  Report Type: Spontaneous
  Country: US (occurrence: US)
  Receive Date: 20250807
  Receipt Date: 20251203
  Transmission Date: 20260118
  Serious: No
  Sender: TRAVERE THERAPEUTICS
  Company Number: US-TRAVERE-2025TVT01078

PATIENT
  Age: 53 Year
  Sex: Female

DRUGS (2)
  1. FILSPARI [Suspect]
     Active Substance: SPARSENTAN
     Indication: IgA nephropathy
     Dosage: LOT NUMBER:1979025, EXPIRY DATE: 25-AUG-2026
     Route: 048
     Dates: start: 20250701
  2. AMLODIPINE [Concomitant]
     Active Substance: AMLODIPINE BESYLATE

REACTIONS (9)
  - Dizziness [None]
  - Pain in extremity [Unknown]
  - Hypoaesthesia [Unknown]
  - Paraesthesia [Unknown]
  - Influenza [Unknown]
  - Headache [Unknown]
  - Cough [Unknown]
  - Blood creatinine increased [Unknown]
  - Hypotension [Unknown]

NARRATIVE: CASE EVENT DATE: 20250701
